FAERS Safety Report 22258646 (Version 1)
Quarter: 2023Q2

REPORT INFORMATION
  Report Type: Spontaneous
  Country: FR (occurrence: FR)
  Receive Date: 20230427
  Receipt Date: 20230427
  Transmission Date: 20230721
  Serious: Yes (Hospitalization)
  Sender: FDA-Public Use
  Company Number: None

PATIENT
  Age: 77 Year
  Sex: Male

DRUGS (14)
  1. EPLERENONE [Suspect]
     Active Substance: EPLERENONE
     Indication: Hypertension
     Dosage: LONG COURSE
     Dates: end: 20221228
  2. FUROSEMIDE [Suspect]
     Active Substance: FUROSEMIDE
     Indication: Hypertension
     Dosage: LONG COURSE
     Dates: end: 20221228
  3. SACUBITRIL\VALSARTAN [Suspect]
     Active Substance: SACUBITRIL\VALSARTAN
     Indication: Hypertension
     Dosage: 24/26 MG 1-0-1 CP/D
     Dates: start: 20221110, end: 20221228
  4. RAMIPRIL [Concomitant]
     Active Substance: RAMIPRIL
  5. KARDEGIC [Concomitant]
     Active Substance: ASPIRIN DL-LYSINE
  6. BECLOMETHASONE DIPROPIONATE [Concomitant]
     Active Substance: BECLOMETHASONE DIPROPIONATE
  7. INSULIN DEGLUDEC [Concomitant]
     Active Substance: INSULIN DEGLUDEC
  8. EZETIMIBE [Concomitant]
     Active Substance: EZETIMIBE
  9. BISOPROLOL [Concomitant]
     Active Substance: BISOPROLOL
  10. REPAGLINIDE [Concomitant]
     Active Substance: REPAGLINIDE
  11. ROSUVASTATIN [Concomitant]
     Active Substance: ROSUVASTATIN
  12. LIRAGLUTIDE [Concomitant]
     Active Substance: LIRAGLUTIDE
  13. OMEPRAZOLE [Concomitant]
     Active Substance: OMEPRAZOLE
  14. FORMOTEROL [Concomitant]
     Active Substance: FORMOTEROL

REACTIONS (2)
  - Chronic kidney disease [Recovering/Resolving]
  - Hyperkalaemia [Recovering/Resolving]

NARRATIVE: CASE EVENT DATE: 20221228
